FAERS Safety Report 14520156 (Version 2)
Quarter: 2018Q1

REPORT INFORMATION
  Report Type: Spontaneous
  Country: US (occurrence: US)
  Receive Date: 20180212
  Receipt Date: 20180223
  Transmission Date: 20180509
  Serious: Yes (Hospitalization, Other)
  Sender: FDA-Public Use
  Company Number: US-TEVA-2018-US-857231

PATIENT
  Sex: Male

DRUGS (6)
  1. CELLCEPT [Suspect]
     Active Substance: MYCOPHENOLATE MOFETIL\MYCOPHENOLATE MOFETIL HYDROCHLORIDE
     Indication: HEART TRANSPLANT
     Route: 065
  2. WARFARIN [Suspect]
     Active Substance: WARFARIN
     Route: 065
  3. WARFARIN [Suspect]
     Active Substance: WARFARIN
     Route: 065
     Dates: start: 2002
  4. RAPAMUNE [Suspect]
     Active Substance: SIROLIMUS
     Indication: HEART TRANSPLANT
     Dosage: 1 MILLIGRAM DAILY;
     Route: 065
     Dates: start: 2005
  5. COUMADIN [Suspect]
     Active Substance: WARFARIN SODIUM
     Route: 065
  6. MYCOPHENOLATE MOFETIL. [Concomitant]
     Active Substance: MYCOPHENOLATE MOFETIL
     Route: 065

REACTIONS (8)
  - Anticoagulation drug level increased [Unknown]
  - Cerebral haemorrhage [Recovering/Resolving]
  - Asthenia [Not Recovered/Not Resolved]
  - Cerebrovascular accident [Unknown]
  - Cognitive disorder [Not Recovered/Not Resolved]
  - Contraindicated product administered [Unknown]
  - Osteoporosis [Unknown]
  - Body height decreased [Unknown]

NARRATIVE: CASE EVENT DATE: 2002
